FAERS Safety Report 12156379 (Version 14)
Quarter: 2017Q4

REPORT INFORMATION
  Report Type: Report from Study
  Country: CO (occurrence: CO)
  Receive Date: 20160307
  Receipt Date: 20171026
  Transmission Date: 20180320
  Serious: Yes (Hospitalization, Other)
  Sender: FDA-Public Use
  Company Number: PHHY2016CO027130

PATIENT
  Age: 46 Year
  Sex: Female
  Weight: 58 kg

DRUGS (8)
  1. REVOLADE [Suspect]
     Active Substance: ELTROMBOPAG
     Dosage: 50 MG, QOD
     Route: 048
  2. REVOLADE [Suspect]
     Active Substance: ELTROMBOPAG
     Dosage: UNK, Q8H
     Route: 065
  3. KEPPRA [Concomitant]
     Active Substance: LEVETIRACETAM
     Indication: EPILEPSY
     Dosage: 500 MG, Q8H
     Route: 065
  4. CLONAZEPAM. [Concomitant]
     Active Substance: CLONAZEPAM
     Indication: PRODUCT USED FOR UNKNOWN INDICATION
     Dosage: 0.25 DF, QD (2 MG)
     Route: 048
  5. REVOLADE [Suspect]
     Active Substance: ELTROMBOPAG
     Dosage: 25 MG, BID
     Route: 048
     Dates: start: 20130124, end: 201511
  6. REVOLADE [Suspect]
     Active Substance: ELTROMBOPAG
     Dosage: UNK, Q12H
     Route: 065
  7. LAMOTRIGINE. [Suspect]
     Active Substance: LAMOTRIGINE
     Indication: EPILEPSY
     Dosage: 100 MG, Q8H
     Route: 048
     Dates: start: 20160313
  8. REVOLADE [Suspect]
     Active Substance: ELTROMBOPAG
     Indication: IMMUNE THROMBOCYTOPENIC PURPURA
     Dosage: 25 MG, BID
     Route: 048
     Dates: start: 20130124

REACTIONS (28)
  - Skin exfoliation [Unknown]
  - Oral mucosal exfoliation [Unknown]
  - Dizziness [Unknown]
  - Mouth haemorrhage [Unknown]
  - Rhinitis [Unknown]
  - Skin plaque [Unknown]
  - Aphonia [Recovering/Resolving]
  - Epistaxis [Recovered/Resolved]
  - Dyspnoea [Unknown]
  - Asthenia [Unknown]
  - Pyrexia [Unknown]
  - Influenza [Recovering/Resolving]
  - Syncope [Unknown]
  - Diarrhoea [Unknown]
  - Headache [Unknown]
  - Fatigue [Recovered/Resolved]
  - Rash [Unknown]
  - Chills [Unknown]
  - Platelet count increased [Unknown]
  - Vaginal haemorrhage [Recovered/Resolved]
  - Haemorrhage [Unknown]
  - Skin discolouration [Unknown]
  - Malaise [Not Recovered/Not Resolved]
  - Dizziness [Recovered/Resolved]
  - Platelet count decreased [Recovered/Resolved]
  - Haematemesis [Unknown]
  - Cough [Recovered/Resolved]
  - Epilepsy [Unknown]

NARRATIVE: CASE EVENT DATE: 20160409
